FAERS Safety Report 23810352 (Version 1)
Quarter: 2024Q2

REPORT INFORMATION
  Report Type: Spontaneous
  Country: TR (occurrence: TR)
  Receive Date: 20240502
  Receipt Date: 20240502
  Transmission Date: 20240716
  Serious: Yes (Death, Other)
  Sender: FDA-Public Use
  Company Number: TR-SANDOZ-SDZ2024TR044260

PATIENT
  Age: 42 Year
  Sex: Male

DRUGS (9)
  1. MYCOPHENOLATE MOFETIL [Suspect]
     Active Substance: MYCOPHENOLATE MOFETIL
     Indication: Immunosuppression
     Dosage: UNK
     Route: 065
  2. PREDNISOLONE [Suspect]
     Active Substance: PREDNISOLONE
     Indication: Immunosuppression
     Dosage: UNK
     Route: 065
  3. TACROLIMUS [Suspect]
     Active Substance: TACROLIMUS
     Indication: Immunosuppression
     Dosage: UNK
     Route: 065
  4. DEXAMETHASONE [Concomitant]
     Active Substance: DEXAMETHASONE
     Indication: Product used for unknown indication
     Route: 065
  5. DEXAMETHASONE [Concomitant]
     Active Substance: DEXAMETHASONE
     Indication: Product used for unknown indication
     Route: 065
  6. ETOPOSIDE [Concomitant]
     Active Substance: ETOPOSIDE
     Indication: Product used for unknown indication
     Route: 065
  7. ETOPOSIDE [Concomitant]
     Active Substance: ETOPOSIDE
     Indication: Product used for unknown indication
     Route: 065
  8. RITUXIMAB [Concomitant]
     Active Substance: RITUXIMAB
     Indication: Product used for unknown indication
     Route: 065
  9. RITUXIMAB [Concomitant]
     Active Substance: RITUXIMAB
     Indication: Product used for unknown indication
     Route: 065

REACTIONS (4)
  - Epstein-Barr virus infection reactivation [Fatal]
  - Cytomegalovirus infection [Fatal]
  - Haemophagocytic lymphohistiocytosis [Fatal]
  - Tubulointerstitial nephritis [Fatal]
